FAERS Safety Report 5443863-3 (Version None)
Quarter: 2007Q3

REPORT INFORMATION
  Report Type: 
  Country: None (occurrence: None)
  Receive Date: 20070905
  Receipt Date: 20070822
  Transmission Date: 20080115
  Serious: No
  Sender: FDA-Public Use
  Company Number: US-BOEHRINGER INGELHEIM PHARMACEUTICALS, INC.-2007-BP-06380BP

PATIENT
  Sex: Male

DRUGS (13)
  1. SPIRIVA [Suspect]
     Indication: EMPHYSEMA
     Route: 055
     Dates: start: 20020101
  2. ALBUTEROL [Concomitant]
  3. FUROSEMIDE [Concomitant]
  4. TRIAMTERENE [Concomitant]
  5. ASPIRIN [Concomitant]
  6. PLAVIX [Concomitant]
  7. ISOSORBIDE DINITRATE [Concomitant]
  8. RANEXA [Concomitant]
  9. COREG [Concomitant]
  10. GEMFIBROZIL [Concomitant]
  11. NORVASC [Concomitant]
  12. PRAVASTATIN [Concomitant]
  13. XOPENEX [Concomitant]
     Route: 055

REACTIONS (2)
  - COUGH [None]
  - DYSPNOEA [None]
